FAERS Safety Report 4635285-X (Version None)
Quarter: 2005Q2

REPORT INFORMATION
  Report Type: 
  Country: None (occurrence: None)
  Receive Date: 20050411
  Receipt Date: 20050329
  Transmission Date: 20051028
  Serious: Yes (Hospitalization, Other)
  Sender: FDA-Public Use
  Company Number: HQWYE241422MAR05

PATIENT
  Age: 76 Year
  Sex: Female
  Weight: 68 kg

DRUGS (21)
  1. RAPAMUNE [Suspect]
     Indication: PROPHYLAXIS AGAINST TRANSPLANT REJECTION
     Dosage: 3 MG 1X PER 1 DAY, ORAL
     Route: 048
     Dates: start: 20050304
  2. RAPAMUNE [Suspect]
  3. CELLCEPT [Suspect]
     Dosage: 1 G 2X PER 1 DAY, ORAL
     Route: 048
  4. MINOXIDIL [Suspect]
     Dosage: 5 MG 2X PER 1 DAY, ORAL
     Route: 048
  5. PREDNISONE [Suspect]
     Dosage: 10 MG 2X PER 1 DAY, ORAL
     Route: 048
  6. VALCYTE [Concomitant]
  7. PROTONIX [Concomitant]
  8. MYCELEX [Concomitant]
  9. MULTIVITAMINS, PLAIN (MULTIVITAMINS, PLAIN) [Concomitant]
  10. BACTRIM [Concomitant]
  11. DARVOCET-N 50 [Concomitant]
  12. LASIX [Concomitant]
  13. IMDUR [Concomitant]
  14. HYDRALAZINE HCL [Concomitant]
  15. TOPROL-XL [Concomitant]
  16. ASPIRIN [Concomitant]
  17. ZOLOFT [Concomitant]
  18. TRAZODONE HCL [Concomitant]
  19. NEUTRA-PHOS (POTASSIUM PHOSHATE DIBASIC/POTASSIUM PHOSPHATE MONOBASIC/ [Concomitant]
  20. PHENERGAN (DIBROPROPAMIDINE ISETIONATE/PROMETHAZINE HYDROCHLORIDE) [Concomitant]
  21. K-DUR 10 [Concomitant]

REACTIONS (14)
  - AORTIC CALCIFICATION [None]
  - AORTIC DISORDER [None]
  - AORTIC VALVE INCOMPETENCE [None]
  - AORTIC VALVE SCLEROSIS [None]
  - BLOOD SODIUM DECREASED [None]
  - BUNDLE BRANCH BLOCK LEFT [None]
  - BUNDLE BRANCH BLOCK RIGHT [None]
  - CARDIAC FAILURE CONGESTIVE [None]
  - CARDIOMEGALY [None]
  - HAEMATOCRIT DECREASED [None]
  - HAEMOGLOBIN DECREASED [None]
  - MITRAL VALVE INCOMPETENCE [None]
  - PULMONARY OEDEMA [None]
  - SCOLIOSIS [None]
